FAERS Safety Report 5335840-8 (Version None)
Quarter: 2007Q2

REPORT INFORMATION
  Report Type: 
  Country: None (occurrence: None)
  Receive Date: 20070309
  Receipt Date: 20070110
  Transmission Date: 20071010
  Serious: Yes (Hospitalization)
  Sender: FDA-Public Use
  Company Number: 095

PATIENT
  Sex: Male

DRUGS (1)
  1. FAZACLO 100 MG ODT AVANIR PHARMACEUTICALS [Suspect]
     Indication: SCHIZOPHRENIA
     Dosage: 500 MG PO DAILY
     Route: 048
     Dates: start: 20060829, end: 20061218

REACTIONS (1)
  - AGRANULOCYTOSIS [None]
